FAERS Safety Report 20059037 (Version 1)
Quarter: 2021Q4

REPORT INFORMATION
  Report Type: Spontaneous
  Country: IT (occurrence: IT)
  Receive Date: 20211111
  Receipt Date: 20211111
  Transmission Date: 20220303
  Serious: Yes (Hospitalization, Other)
  Sender: FDA-Public Use
  Company Number: IT-ABBVIE-21K-083-4156544-00

PATIENT
  Age: 41 Year
  Sex: Male

DRUGS (5)
  1. VALPROATE SODIUM [Suspect]
     Active Substance: VALPROATE SODIUM
     Indication: Suicide attempt
     Dosage: TOTAL
     Route: 048
     Dates: start: 20191127, end: 20191127
  2. MIRTAZAPINE [Suspect]
     Active Substance: MIRTAZAPINE
     Indication: Suicide attempt
     Dosage: TOTAL
     Route: 048
     Dates: start: 20191127, end: 20191127
  3. TRAZODONE HYDROCHLORIDE [Suspect]
     Active Substance: TRAZODONE HYDROCHLORIDE
     Indication: Suicide attempt
     Dosage: TOTAL
     Route: 048
     Dates: start: 20191127, end: 20191127
  4. TALOFEN [Suspect]
     Active Substance: PROMAZINE HYDROCHLORIDE
     Indication: Suicide attempt
     Dosage: 4 G/100 ML ?20 GTT DROPS TOTAL
     Route: 048
     Dates: start: 20191127, end: 20191127
  5. CLOTHIAPINE [Suspect]
     Active Substance: CLOTHIAPINE
     Indication: Suicide attempt
     Dosage: 30 GTT DROPS, TOTAL
     Route: 048
     Dates: start: 20191127, end: 20191127

REACTIONS (5)
  - Loss of consciousness [Recovered/Resolved]
  - Drug abuse [Unknown]
  - Suicide attempt [Unknown]
  - Vomiting [Recovered/Resolved]
  - Overdose [Unknown]

NARRATIVE: CASE EVENT DATE: 20191128
